FAERS Safety Report 17846926 (Version 1)
Quarter: 2020Q2

REPORT INFORMATION
  Report Type: Spontaneous
  Country: US (occurrence: US)
  Receive Date: 20200601
  Receipt Date: 20200601
  Transmission Date: 20200714
  Serious: Yes (Life-Threatening)
  Sender: FDA-Public Use
  Company Number: None

PATIENT
  Age: 68 Year
  Sex: Female
  Weight: 57.6 kg

DRUGS (12)
  1. CLONAZEPAM. [Concomitant]
     Active Substance: CLONAZEPAM
  2. PLAVIX [Concomitant]
     Active Substance: CLOPIDOGREL BISULFATE
  3. NITROGLYCERIN. [Concomitant]
     Active Substance: NITROGLYCERIN
  4. AZELASTINE NASAL SPRAY [Concomitant]
     Active Substance: AZELASTINE
  5. LEVOTHYROXINE. [Concomitant]
     Active Substance: LEVOTHYROXINE
  6. DILTIAZEM 30 MG [Concomitant]
  7. ATORVASTATIN [Concomitant]
     Active Substance: ATORVASTATIN
  8. ISOSORBIDE MONONITRATE. [Concomitant]
     Active Substance: ISOSORBIDE MONONITRATE
  9. ZIPRASIDONE. [Suspect]
     Active Substance: ZIPRASIDONE
     Indication: SCHIZOPHRENIA
     Dosage: ?          QUANTITY:1 CAPSULE(S);?
     Route: 048
  10. ZIPRASIDONE. [Suspect]
     Active Substance: ZIPRASIDONE
     Indication: PARANOIA
     Dosage: ?          QUANTITY:1 CAPSULE(S);?
     Route: 048
  11. ZIPRASIDONE. [Concomitant]
     Active Substance: ZIPRASIDONE
  12. GLYCINE. [Concomitant]
     Active Substance: GLYCINE

REACTIONS (2)
  - Product substitution issue [None]
  - Near death experience [None]

NARRATIVE: CASE EVENT DATE: 20171226
